FAERS Safety Report 9705654 (Version 1)
Quarter: 2013Q4

REPORT INFORMATION
  Report Type: Spontaneous
  Country: US (occurrence: US)
  Receive Date: 20131122
  Receipt Date: 20131122
  Transmission Date: 20140711
  Serious: No
  Sender: FDA-Public Use
  Company Number: US-GILEAD-2008-0017522

PATIENT
  Sex: Female
  Weight: 63.5 kg

DRUGS (12)
  1. LETAIRIS [Suspect]
     Indication: PULMONARY ARTERIAL HYPERTENSION
     Route: 048
     Dates: start: 20080331
  2. LASIX [Concomitant]
     Route: 048
  3. CADUET [Concomitant]
  4. METOPROLOL [Concomitant]
     Route: 048
  5. LISINOPRIL [Concomitant]
     Route: 048
  6. COLCHICINE [Concomitant]
     Route: 048
  7. ALLOPURINOL [Concomitant]
     Route: 048
  8. ASPIRIN [Concomitant]
     Route: 048
  9. MULTIVITAMIN [Concomitant]
     Route: 048
  10. POTASSIUM CHLORIDE [Concomitant]
     Route: 048
  11. CALCIUM [Concomitant]
     Route: 048
  12. ALEVE [Concomitant]
     Route: 048

REACTIONS (1)
  - Abdominal distension [None]
